FAERS Safety Report 12207754 (Version 2)
Quarter: 2016Q2

REPORT INFORMATION
  Report Type: Spontaneous
  Country: AU (occurrence: AU)
  Receive Date: 20160324
  Receipt Date: 20160404
  Transmission Date: 20160815
  Serious: Yes (Other)
  Sender: FDA-Public Use
  Company Number: AU-PFIZER INC-2016167059

PATIENT
  Sex: Female

DRUGS (1)
  1. PREMARIN [Suspect]
     Active Substance: ESTROGENS, CONJUGATED
     Indication: PREMATURE MENOPAUSE
     Dosage: 0.3 UG, 2X/WEEK
     Dates: start: 1991

REACTIONS (2)
  - Acne [Unknown]
  - Meningioma [Unknown]
